FAERS Safety Report 4400712-X (Version None)
Quarter: 2004Q3

REPORT INFORMATION
  Report Type: 
  Country: None (occurrence: None)
  Receive Date: 20040714
  Receipt Date: 20000316
  Transmission Date: 20050211
  Serious: Yes (Hospitalization)
  Sender: FDA-Public Use
  Company Number: 2000-BL-00017 (1)

PATIENT
  Age: 36 Year

DRUGS (7)
  1. VIRAMUNE [Suspect]
     Indication: HIV INFECTION
     Dosage: 200 MG (200 MG, 1/2 TAB BID)  PO
     Route: 048
     Dates: start: 20000118, end: 20000125
  2. ZIDOVUDINE [Concomitant]
  3. LAMIVUDINE [Concomitant]
  4. ABACAVIR [Concomitant]
  5. HYDROXYUREA [Concomitant]
  6. METHADONE HCL [Concomitant]
  7. PREDNISOLONE [Concomitant]

REACTIONS (3)
  - DRUG WITHDRAWAL SYNDROME [None]
  - PSYCHOTIC DISORDER [None]
  - REFUSAL OF TREATMENT BY PATIENT [None]
